FAERS Safety Report 4506914-6 (Version None)
Quarter: 2004Q4

REPORT INFORMATION
  Report Type: 
  Country: None (occurrence: None)
  Receive Date: 20041117
  Receipt Date: 20041108
  Transmission Date: 20050328
  Serious: Yes (Hospitalization, Other)
  Sender: FDA-Public Use
  Company Number: 2004075228

PATIENT
  Age: 68 Year
  Sex: Female

DRUGS (2)
  1. LIPITOR [Suspect]
     Indication: HYPERCHOLESTEROLAEMIA
     Dosage: 5 MG (5 MG, 1 IN 1 D), ORAL
     Route: 048
     Dates: start: 20040310, end: 20040430
  2. LEVOTHYROXINE SODIUM [Concomitant]

REACTIONS (6)
  - ALCOHOL USE [None]
  - CARCINOMA [None]
  - HEPATIC FUNCTION ABNORMAL [None]
  - PALPITATIONS [None]
  - VOMITING [None]
  - WEIGHT DECREASED [None]
